FAERS Safety Report 13546507 (Version 1)
Quarter: 2017Q2

REPORT INFORMATION
  Report Type: Spontaneous
  Country: US (occurrence: US)
  Receive Date: 20170515
  Receipt Date: 20170515
  Transmission Date: 20170830
  Serious: Yes (Other)
  Sender: FDA-Public Use
  Company Number: None

PATIENT
  Age: 29 Year
  Sex: Female
  Weight: 74.46 kg

DRUGS (1)
  1. MIRENA [Suspect]
     Active Substance: LEVONORGESTREL

REACTIONS (5)
  - Disease recurrence [None]
  - Fatigue [None]
  - Muscle twitching [None]
  - Abscess [None]
  - Muscular weakness [None]

NARRATIVE: CASE EVENT DATE: 20100510
